FAERS Safety Report 6390274-2 (Version None)
Quarter: 2009Q4

REPORT INFORMATION
  Report Type: 
  Country: None (occurrence: None)
  Receive Date: 20091006
  Receipt Date: 20090928
  Transmission Date: 20100525
  Serious: Yes (Hospitalization)
  Sender: FDA-Public Use
  Company Number: NL-ABBOTT-09P-114-0599519-00

PATIENT
  Sex: Female
  Weight: 70 kg

DRUGS (6)
  1. CLARITHROMYCIN [Suspect]
     Indication: COUGH
     Route: 048
     Dates: start: 20090908
  2. LEVEMIR PENFILL INJ 100E/ML PATROON 3ML [Interacting]
     Indication: TYPE 1 DIABETES MELLITUS
  3. NOVORAPID PENFIL [Interacting]
     Indication: TYPE 1 DIABETES MELLITUS
     Dosage: TID AS NEEDED ALSO IN THE NIGHT
  4. EZETROL [Concomitant]
     Indication: DRUG USE FOR UNKNOWN INDICATION
     Route: 048
     Dates: start: 20080101
  5. XALATAN [Concomitant]
     Indication: DRUG USE FOR UNKNOWN INDICATION
     Dosage: 2.5ML
     Route: 061
     Dates: start: 20080101
  6. COZAAR [Concomitant]
     Indication: DRUG USE FOR UNKNOWN INDICATION
     Route: 048
     Dates: start: 20080101

REACTIONS (3)
  - DIARRHOEA [None]
  - HYPOGLYCAEMIA [None]
  - POTENTIATING DRUG INTERACTION [None]
